FAERS Safety Report 11184784 (Version 2)
Quarter: 2015Q2

REPORT INFORMATION
  Report Type: Spontaneous
  Country: FR (occurrence: FR)
  Receive Date: 20150612
  Receipt Date: 20150619
  Transmission Date: 20150821
  Serious: Yes (Hospitalization)
  Sender: FDA-Public Use
  Company Number: FR-PFIZER INC-2015191343

PATIENT
  Age: 49 Year
  Sex: Female

DRUGS (10)
  1. PROGESTERONE. [Concomitant]
     Active Substance: PROGESTERONE
     Dosage: UNK
     Route: 048
  2. TAZOCILLINE [Suspect]
     Active Substance: PIPERACILLIN SODIUM\TAZOBACTAM SODIUM
     Indication: SEPSIS SYNDROME
     Dosage: 1 DF, 3X/DAY
     Route: 042
     Dates: start: 20150315, end: 20150404
  3. TAZOCILLINE [Suspect]
     Active Substance: PIPERACILLIN SODIUM\TAZOBACTAM SODIUM
     Indication: INFLAMMATION
  4. NOVORAPID [Concomitant]
     Active Substance: INSULIN ASPART
     Dosage: UNK, 3X/DAY (ACCORDING TO THE BLOOD GLUCOSE LEVEL)
     Route: 058
     Dates: start: 20150324
  5. LEXOMIL [Concomitant]
     Active Substance: BROMAZEPAM
     Dosage: 1.5 MG, DAILY AS NEEDED
     Route: 048
     Dates: start: 20150324
  6. DOLIPRANE [Concomitant]
     Active Substance: ACETAMINOPHEN
     Dosage: 4 G, DAILY AS NEEDED
     Route: 048
  7. MEDNUTRIFLEX [Concomitant]
     Indication: PARENTERAL NUTRITION
     Dosage: 1875 ML OVER 12 HOURS
     Route: 042
  8. EPINITRIL [Concomitant]
     Active Substance: NITROGLYCERIN
     Dosage: 15 MG, DAILY (12 HOURS A DAY)
     Route: 062
     Dates: start: 20150324
  9. EUPANTOL [Concomitant]
     Active Substance: PANTOPRAZOLE SODIUM
     Dosage: 40 MG, 1X/DAY
     Route: 048
  10. TAZOCILLINE [Suspect]
     Active Substance: PIPERACILLIN SODIUM\TAZOBACTAM SODIUM
     Indication: PYREXIA
     Dosage: 1 DF, 3X/DAY
     Route: 042
     Dates: start: 20150408, end: 20150410

REACTIONS (1)
  - Encephalopathy [Recovered/Resolved]

NARRATIVE: CASE EVENT DATE: 20150410
